FAERS Safety Report 10553886 (Version 3)
Quarter: 2015Q1

REPORT INFORMATION
  Report Type: Spontaneous
  Country: BR (occurrence: BR)
  Receive Date: 20141030
  Receipt Date: 20150322
  Transmission Date: 20150720
  Serious: Yes (Life-Threatening, Hospitalization, Other)
  Sender: FDA-Public Use
  Company Number: PHHY2014BR137926

PATIENT
  Age: 44 Year
  Sex: Male
  Weight: 83 kg

DRUGS (1)
  1. TASIGNA [Suspect]
     Active Substance: NILOTINIB
     Indication: CHRONIC MYELOID LEUKAEMIA
     Dosage: 400 MG, BID
     Route: 048
     Dates: start: 20130925, end: 20140909

REACTIONS (7)
  - Chest discomfort [Unknown]
  - Acute myocardial infarction [Unknown]
  - Chest pain [Not Recovered/Not Resolved]
  - Device occlusion [Unknown]
  - Angina pectoris [Unknown]
  - Electrocardiogram T wave inversion [Unknown]
  - Myocardial ischaemia [Unknown]

NARRATIVE: CASE EVENT DATE: 20140908
